FAERS Safety Report 9250264 (Version 3)
Quarter: 2013Q4

REPORT INFORMATION
  Report Type: Spontaneous
  Country: US (occurrence: US)
  Receive Date: 20130424
  Receipt Date: 20131017
  Transmission Date: 20140711
  Serious: Yes (Hospitalization, Disabling)
  Sender: FDA-Public Use
  Company Number: US-ASTRAZENECA-2013SE27349

PATIENT
  Age: 18864 Day
  Sex: Female

DRUGS (9)
  1. NEXIUM [Suspect]
     Indication: DYSPEPSIA
     Route: 048
     Dates: start: 20100521, end: 20110513
  2. NEXIUM [Suspect]
     Indication: GASTRIC DISORDER
     Route: 048
     Dates: start: 20100521, end: 20110513
  3. NEXIUM [Suspect]
     Indication: DYSPEPSIA
     Route: 048
     Dates: start: 201108
  4. NEXIUM [Suspect]
     Indication: GASTRIC DISORDER
     Route: 048
     Dates: start: 201108
  5. NEXIUM [Suspect]
     Indication: DYSPEPSIA
     Route: 048
     Dates: start: 200912, end: 201109
  6. NEXIUM [Suspect]
     Indication: GASTRIC DISORDER
     Route: 048
     Dates: start: 200912, end: 201109
  7. TUM [Concomitant]
     Dosage: AS NEEDED
     Dates: start: 1990
  8. ROLAIDS [Concomitant]
     Dosage: AS NEEDED
     Dates: start: 1990
  9. TAGAMET [Concomitant]

REACTIONS (17)
  - Arthritis [Unknown]
  - Intervertebral disc disorder [Unknown]
  - Intervertebral disc degeneration [Unknown]
  - Intervertebral disc protrusion [Unknown]
  - Foot fracture [Unknown]
  - Post-traumatic stress disorder [Unknown]
  - Arthropathy [Unknown]
  - Osteoporosis [Unknown]
  - Arterial disorder [Unknown]
  - Bone disorder [Unknown]
  - Rib fracture [Unknown]
  - Calcium deficiency [Unknown]
  - Multiple fractures [Unknown]
  - Joint dislocation [Unknown]
  - Rheumatoid arthritis [Unknown]
  - Vitamin D deficiency [Unknown]
  - Depression [Unknown]
